FAERS Safety Report 8077753-7 (Version None)
Quarter: 2012Q1

REPORT INFORMATION
  Report Type: 
  Country: None (occurrence: None)
  Receive Date: 20120127
  Receipt Date: 20120125
  Transmission Date: 20120608
  Serious: Yes (Other)
  Sender: FDA-Public Use
  Company Number: US-PFIZER INC-2012015270

PATIENT
  Sex: Female

DRUGS (2)
  1. PROTONIX [Suspect]
     Dosage: UNK
     Route: 065
  2. NORVASC [Suspect]
     Dosage: UNK
     Route: 065

REACTIONS (3)
  - GASTRIC DISORDER [None]
  - BACK PAIN [None]
  - HERNIA [None]
